FAERS Safety Report 4964156-4 (Version None)
Quarter: 2006Q1

REPORT INFORMATION
  Report Type: 
  Country: None (occurrence: None)
  Receive Date: 20060330
  Receipt Date: 20060320
  Transmission Date: 20060701
  Serious: Yes (Hospitalization)
  Sender: FDA-Public Use
  Company Number: S05-USA-04689-01

PATIENT
  Age: 42 Year
  Sex: Female

DRUGS (19)
  1. LEXAPRO [Suspect]
     Indication: ANXIETY
     Dosage: 5 MG QD PO
     Route: 048
     Dates: start: 20051218, end: 20051223
  2. LEXAPRO [Suspect]
     Indication: DEPRESSION
     Dosage: 5 MG QD PO
     Route: 048
     Dates: start: 20051218, end: 20051223
  3. LEXAPRO [Suspect]
     Indication: ANXIETY
     Dosage: 2.5 MG QD PO
     Route: 048
     Dates: start: 20060104
  4. LEXAPRO [Suspect]
     Indication: DEPRESSION
     Dosage: 2.5 MG QD PO
     Route: 048
     Dates: start: 20060104
  5. LEXAPRO [Suspect]
     Indication: ANXIETY
     Dosage: 10 MG QD PO
     Route: 048
     Dates: start: 20050520, end: 20050622
  6. LEXAPRO [Suspect]
     Indication: DEPRESSION
     Dosage: 10 MG QD PO
     Route: 048
     Dates: start: 20050520, end: 20050622
  7. LEXAPRO [Suspect]
     Indication: ANXIETY
     Dosage: 20 MG QD PO
     Route: 048
     Dates: start: 20050623, end: 20051003
  8. LEXAPRO [Suspect]
     Indication: DEPRESSION
     Dosage: 20 MG QD PO
     Route: 048
     Dates: start: 20050623, end: 20051003
  9. LEXAPRO [Suspect]
     Indication: ANXIETY
     Dosage: 10 MG QD PO
     Route: 048
     Dates: start: 20051004, end: 20051001
  10. LEXAPRO [Suspect]
     Indication: DEPRESSION
     Dosage: 10 MG QD PO
     Route: 048
     Dates: start: 20051004, end: 20051001
  11. CLARITIN [Suspect]
     Indication: HYPERSENSITIVITY
     Dates: end: 20051006
  12. PRILOSEC [Concomitant]
  13. NIACIN [Concomitant]
  14. CALCIUM (CALCIUM) [Concomitant]
  15. PAMELOR [Concomitant]
  16. ATIVAN [Concomitant]
  17. LAMICTAL (LAMOTRIGRINE) [Concomitant]
  18. ABILITY (ARIPIPRAZOLE) [Concomitant]
  19. CELEXA [Concomitant]

REACTIONS (25)
  - ANGER [None]
  - ASTHENOPIA [None]
  - BACK INJURY [None]
  - BIPOLAR DISORDER [None]
  - CONDITION AGGRAVATED [None]
  - CRYING [None]
  - DEPRESSION [None]
  - DRUG INTERACTION [None]
  - DRY EYE [None]
  - EYE IRRITATION [None]
  - EYE PRURITUS [None]
  - FAMILY STRESS [None]
  - FATIGUE [None]
  - FEELING ABNORMAL [None]
  - FOOD CRAVING [None]
  - IDIOSYNCRATIC DRUG REACTION [None]
  - IMPAIRED DRIVING ABILITY [None]
  - IMPAIRED WORK ABILITY [None]
  - IRRITABILITY [None]
  - MUSCLE SPASMS [None]
  - OBSESSIVE-COMPULSIVE DISORDER [None]
  - PHOTOSENSITIVITY REACTION [None]
  - SELF-INJURIOUS IDEATION [None]
  - SINUSITIS [None]
  - VISION BLURRED [None]
